FAERS Safety Report 6051370-2 (Version None)
Quarter: 2009Q1

REPORT INFORMATION
  Report Type: 
  Country: None (occurrence: None)
  Receive Date: 20090121
  Receipt Date: 20090121
  Transmission Date: 20090719
  Serious: Yes (Hospitalization)
  Sender: FDA-Public Use
  Company Number: None

PATIENT
  Sex: Male
  Weight: 89.2 kg

DRUGS (2)
  1. DACARBAZINE [Suspect]
     Indication: MALIGNANT MELANOMA
     Dosage: V Q21 DAYS
     Dates: start: 20081215, end: 20090105
  2. DASATINIB - 50MG BID- BRISTOL-MYERS SQUIBB [Suspect]
     Indication: MALIGNANT MELANOMA
     Dosage: ORALLY BID
     Route: 048
     Dates: start: 20081215, end: 20090111

REACTIONS (3)
  - CENTRAL NERVOUS SYSTEM LESION [None]
  - DIARRHOEA [None]
  - METASTASIS [None]
